FAERS Safety Report 16863106 (Version 4)
Quarter: 2020Q1

REPORT INFORMATION
  Report Type: Spontaneous
  Country: US (occurrence: US)
  Receive Date: 20190927
  Receipt Date: 20200225
  Transmission Date: 20200409
  Serious: Yes (Other)
  Sender: FDA-Public Use
  Company Number: US-PFIZER INC-2019347611

PATIENT
  Age: 56 Year
  Sex: Female
  Weight: 71.67 kg

DRUGS (1)
  1. LYRICA [Suspect]
     Active Substance: PREGABALIN
     Indication: TORTICOLLIS
     Dosage: 200 MG, 1X/DAY
     Route: 048

REACTIONS (6)
  - Antinuclear antibody positive [Unknown]
  - Off label use [Unknown]
  - Product use in unapproved indication [Unknown]
  - Rheumatoid arthritis [Unknown]
  - Dystonia [Unknown]
  - Neuralgia [Unknown]
